FAERS Safety Report 13055816 (Version 1)
Quarter: 2016Q4

REPORT INFORMATION
  Report Type: Report from Study
  Country: None (occurrence: US)
  Receive Date: 20161222
  Receipt Date: 20161222
  Transmission Date: 20170207
  Serious: Yes (Hospitalization, Other)
  Sender: FDA-Public Use
  Company Number: US-ABBVIE-16P-163-1818632-00

PATIENT
  Age: 66 Year
  Sex: Female

DRUGS (1)
  1. VENCLEXTA [Suspect]
     Active Substance: VENETOCLAX
     Indication: CHRONIC LYMPHOCYTIC LEUKAEMIA
     Route: 048
     Dates: start: 201612

REACTIONS (4)
  - Ankle fracture [Unknown]
  - Fatigue [Unknown]
  - Nausea [Unknown]
  - Fall [Unknown]

NARRATIVE: CASE EVENT DATE: 20161209
